FAERS Safety Report 11216582 (Version 2)
Quarter: 2015Q3

REPORT INFORMATION
  Report Type: Spontaneous
  Country: US (occurrence: US)
  Receive Date: 20150624
  Receipt Date: 20150717
  Transmission Date: 20151125
  Serious: No
  Sender: FDA-Public Use
  Company Number: US-GILEAD-2015-0159283

PATIENT
  Sex: Male

DRUGS (2)
  1. ZYDELIG [Suspect]
     Active Substance: IDELALISIB
     Dosage: UNK
     Route: 065
  2. ZYDELIG [Suspect]
     Active Substance: IDELALISIB
     Dosage: UNK
     Route: 065

REACTIONS (1)
  - Rash [Unknown]
